FAERS Safety Report 7575169-0 (Version None)
Quarter: 2011Q2

REPORT INFORMATION
  Report Type: 
  Country: None (occurrence: None)
  Receive Date: 20110627
  Receipt Date: 20110621
  Transmission Date: 20111010
  Serious: Yes (Other)
  Sender: FDA-Public Use
  Company Number: BR-PFIZER INC-2011137096

PATIENT
  Sex: Female

DRUGS (1)
  1. LYRICA [Suspect]
     Indication: NECK PAIN
     Dosage: TWO CAPSULES OF 75 MG DAILY
     Route: 048
     Dates: start: 20110617, end: 20110617

REACTIONS (4)
  - DEHYDRATION [None]
  - RETCHING [None]
  - HEADACHE [None]
  - VOMITING [None]
